FAERS Safety Report 9701608 (Version 1)
Quarter: 2013Q4

REPORT INFORMATION
  Report Type: Spontaneous
  Country: US (occurrence: US)
  Receive Date: 20131121
  Receipt Date: 20131121
  Transmission Date: 20140711
  Serious: Yes (Other)
  Sender: FDA-Public Use
  Company Number: US-009507513-1311USA008033

PATIENT
  Age: 14 Year
  Sex: Male

DRUGS (5)
  1. SINGULAIR [Suspect]
     Indication: ANAPHYLACTIC REACTION
     Dosage: 10 MG
     Route: 065
  2. CROMOLYN [Suspect]
     Indication: ANAPHYLACTIC REACTION
     Dosage: 200 MG
     Route: 065
  3. FEXOFENADINE HYDROCHLORIDE [Suspect]
     Indication: ANAPHYLACTIC REACTION
     Dosage: 180 MG
     Route: 065
  4. IBUPROFEN [Suspect]
     Indication: PRODUCT USED FOR UNKNOWN INDICATION
     Dosage: 200 MG
     Route: 048
  5. RANITIDINE [Suspect]
     Indication: ANAPHYLACTIC REACTION
     Dosage: 150 MG
     Route: 065

REACTIONS (2)
  - Anaphylactic reaction [Unknown]
  - Drug ineffective [Unknown]
